FAERS Safety Report 7155327-X (Version None)
Quarter: 2010Q4

REPORT INFORMATION
  Report Type: 
  Country: None (occurrence: None)
  Receive Date: 20101214
  Receipt Date: 20101206
  Transmission Date: 20110411
  Serious: Yes (Other)
  Sender: FDA-Public Use
  Company Number: US-BIOGENIDEC-2010BI037738

PATIENT
  Age: 32 Year
  Sex: Female

DRUGS (2)
  1. TYSABRI [Suspect]
     Indication: MULTIPLE SCLEROSIS
     Route: 042
     Dates: start: 20100924, end: 20100924
  2. SOLU-MEDROL [Concomitant]
     Dates: end: 20100801

REACTIONS (4)
  - CARDIAC PERFORATION [None]
  - HYPERTENSION [None]
  - LOSS OF CONSCIOUSNESS [None]
  - PREGNANCY [None]
